FAERS Safety Report 10094275 (Version 3)
Quarter: 2014Q2

REPORT INFORMATION
  Report Type: Spontaneous
  Country: FR (occurrence: FR)
  Receive Date: 20140422
  Receipt Date: 20140506
  Transmission Date: 20141212
  Serious: Yes (Death, Other)
  Sender: FDA-Public Use
  Company Number: FR-SA-2014SA049533

PATIENT
  Age: 61 Year
  Sex: Male

DRUGS (6)
  1. FABRAZYME [Suspect]
     Indication: FABRY^S DISEASE
     Route: 042
     Dates: start: 2001, end: 20140331
  2. RAMIPRIL [Concomitant]
     Indication: CARDIAC FAILURE
  3. ALDACTONE [Concomitant]
     Indication: CARDIAC FAILURE
  4. LASILIX [Concomitant]
     Indication: CARDIAC FAILURE
  5. CARDENSIEL [Concomitant]
     Indication: CARDIAC FAILURE
  6. KARDEGIC [Concomitant]
     Indication: CARDIAC FAILURE

REACTIONS (4)
  - General physical health deterioration [Fatal]
  - Myocardial infarction [Fatal]
  - Cardiac disorder [Unknown]
  - Medical device complication [Unknown]
